FAERS Safety Report 7325299-3 (Version None)
Quarter: 2011Q1

REPORT INFORMATION
  Report Type: 
  Country: None (occurrence: None)
  Receive Date: 20110302
  Receipt Date: 20110218
  Transmission Date: 20110831
  Serious: Yes (Hospitalization)
  Sender: FDA-Public Use
  Company Number: DE-JNJFOC-20100808371

PATIENT
  Sex: Female
  Weight: 76 kg

DRUGS (9)
  1. UNKNOWN MEDICATION [Concomitant]
     Indication: DIARRHOEA
     Route: 048
  2. VOLTAREN [Concomitant]
     Indication: BACK PAIN
     Route: 048
  3. UNKNOWN MEDICATION [Concomitant]
     Route: 048
  4. PANTOZOL [Concomitant]
     Indication: PROPHYLAXIS
     Route: 048
  5. TRAMODOL [Concomitant]
     Indication: PROCEDURAL PAIN
     Dosage: 20 DROPS
     Route: 048
  6. NOVAMINSULFON [Concomitant]
     Indication: PROCEDURAL PAIN
     Dosage: 40 DROPS
     Route: 048
  7. REMICADE [Suspect]
     Indication: COLITIS ULCERATIVE
     Route: 042
  8. UNKNOWN MEDICATION [Concomitant]
     Route: 048
  9. SAROTENA [Concomitant]
     Indication: DEPRESSION
     Route: 048

REACTIONS (2)
  - COLITIS ULCERATIVE [None]
  - COLECTOMY [None]
